FAERS Safety Report 9259130 (Version 3)
Quarter: 2013Q3

REPORT INFORMATION
  Report Type: Spontaneous
  Country: CO (occurrence: CO)
  Receive Date: 20130426
  Receipt Date: 20130724
  Transmission Date: 20140515
  Serious: Yes (Hospitalization)
  Sender: FDA-Public Use
  Company Number: CO-PFIZER INC-2013128041

PATIENT
  Age: 14 Year
  Sex: Male
  Weight: 49.9 kg

DRUGS (3)
  1. GENOTROPIN [Suspect]
     Indication: BODY HEIGHT BELOW NORMAL
     Dosage: 1.6 MG, 1X/DAY
     Route: 058
     Dates: start: 2008, end: 201305
  2. GENOTROPIN [Suspect]
     Indication: SPONDYLITIS
     Dosage: 1.6 MG, 1X/DAY
     Route: 058
     Dates: start: 20130718
  3. GENOTROPIN [Suspect]
     Indication: GROWTH HORMONE DEFICIENCY

REACTIONS (4)
  - Platelet count decreased [Not Recovered/Not Resolved]
  - Dengue fever [Recovered/Resolved]
  - Bradycardia [Recovered/Resolved]
  - Hypotension [Recovering/Resolving]
